FAERS Safety Report 9222466 (Version 1)
Quarter: 2013Q2

REPORT INFORMATION
  Report Type: Spontaneous
  Country: US (occurrence: US)
  Receive Date: 20130410
  Receipt Date: 20130410
  Transmission Date: 20140414
  Serious: No
  Sender: FDA-Public Use
  Company Number: US-VERTEX PHARMACEUTICALS INC.-2013-004592

PATIENT
  Age: 58 Year
  Sex: Male
  Weight: 90 kg

DRUGS (3)
  1. INCIVEK [Suspect]
     Indication: HEPATITIS C
     Dosage: 750 MG, TID
     Route: 048
     Dates: start: 20130220
  2. PEGASYS [Suspect]
     Indication: HEPATITIS C
     Dosage: 180 ?G, WEEKLY
     Route: 058
     Dates: start: 20130220
  3. RIBAVIRIN [Suspect]
     Indication: HEPATITIS C
     Dosage: 600MG AM AND 400MG PM
     Route: 048
     Dates: start: 20130220

REACTIONS (7)
  - Abdominal discomfort [Recovered/Resolved]
  - Fatigue [Not Recovered/Not Resolved]
  - Rash [Recovered/Resolved]
  - Pruritus [Recovered/Resolved]
  - Anorectal discomfort [Recovered/Resolved]
  - Diarrhoea [Recovered/Resolved]
  - Haemorrhoids [Recovered/Resolved]
